FAERS Safety Report 25063182 (Version 1)
Quarter: 2025Q1

REPORT INFORMATION
  Report Type: Spontaneous
  Country: US (occurrence: US)
  Receive Date: 20250311
  Receipt Date: 20250311
  Transmission Date: 20250408
  Serious: No
  Sender: SPRINGWORKS THERAPEUTIC
  Company Number: US-SPRINGWORKS THERAPEUTICS-SW-002273

PATIENT

DRUGS (1)
  1. OGSIVEO [Suspect]
     Active Substance: NIROGACESTAT HYDROBROMIDE
     Indication: Product used for unknown indication

REACTIONS (4)
  - Illness [Unknown]
  - Nausea [Unknown]
  - Rash [Recovering/Resolving]
  - Diarrhoea [Unknown]
